FAERS Safety Report 16794606 (Version 1)
Quarter: 2019Q3

REPORT INFORMATION
  Report Type: Spontaneous
  Country: PT (occurrence: PT)
  Receive Date: 20190911
  Receipt Date: 20190911
  Transmission Date: 20191005
  Serious: Yes (Death, Other)
  Sender: FDA-Public Use
  Company Number: PT-MYLANLABS-2019M1084713

PATIENT
  Age: 56 Year
  Sex: Male

DRUGS (4)
  1. FOLINIC ACID [Suspect]
     Active Substance: LEUCOVORIN
     Indication: ADENOCARCINOMA OF COLON
     Dosage: FOUR 2 WEEKLY CYCLES. ADMINISTERED VIA EPIDURAL CENTRAL VENOUS CATHETER.
     Route: 008
  2. BEVACIZUMAB. [Suspect]
     Active Substance: BEVACIZUMAB
     Indication: ADENOCARCINOMA OF COLON
     Dosage: FOUR 2 WEEKLY CYCLES. ADMINISTERED VIA EPIDURAL CENTRAL VENOUS CATHETER.
     Route: 008
  3. 5-FLUOROURACIL                     /00098801/ [Suspect]
     Active Substance: FLUOROURACIL
     Indication: ADENOCARCINOMA OF COLON
     Dosage: FOUR 2 WEEKLY CYCLES. ADMINISTERED VIA EPIDURAL CENTRAL VENOUS CATHETER.
     Route: 008
  4. OXALIPLATIN. [Suspect]
     Active Substance: OXALIPLATIN
     Indication: ADENOCARCINOMA OF COLON
     Dosage: FOUR 2 WEEKLY CYCLES. ADMINISTERED VIA EPIDURAL CENTRAL VENOUS CATHETER.
     Route: 008

REACTIONS (1)
  - Myelopathy [Fatal]
